FAERS Safety Report 5521119-8 (Version None)
Quarter: 2007Q4

REPORT INFORMATION
  Report Type: 
  Country: None (occurrence: None)
  Receive Date: 20071119
  Receipt Date: 20071113
  Transmission Date: 20080405
  Serious: Yes (Hospitalization)
  Sender: FDA-Public Use
  Company Number: DE-WYE-G00606507

PATIENT
  Sex: Female
  Weight: 70 kg

DRUGS (8)
  1. VENLAFAXINE HCL [Suspect]
     Route: 048
  2. VENLAFAXINE HCL [Suspect]
     Dosage: 75 MG
     Route: 048
     Dates: start: 20071026, end: 20071026
  3. RISPERDAL [Suspect]
     Route: 048
  4. RISPERDAL [Suspect]
     Dosage: 8 TABLETS (16 MG, OVERDOSE AMOUNT 12 MG)
     Route: 048
     Dates: start: 20071026, end: 20071026
  5. ZOPICLONE [Suspect]
     Route: 048
  6. ZOPICLONE [Suspect]
     Dosage: 20 TABLETS (150 MG, OVERDOSE AMOUNT 142,5MG)
     Route: 048
     Dates: start: 20071026, end: 20071026
  7. ERGENYL CHRONO [Suspect]
     Route: 048
  8. ERGENYL CHRONO [Suspect]
     Dosage: 1000 MG
     Route: 048
     Dates: start: 20071026, end: 20071026

REACTIONS (4)
  - DYSARTHRIA [None]
  - GAIT DISTURBANCE [None]
  - SOMNOLENCE [None]
  - SUICIDE ATTEMPT [None]
